FAERS Safety Report 17890103 (Version 1)
Quarter: 2020Q2

REPORT INFORMATION
  Report Type: Spontaneous
  Country: CA (occurrence: CA)
  Receive Date: 20200612
  Receipt Date: 20200612
  Transmission Date: 20200714
  Serious: Yes (Other)
  Sender: FDA-Public Use
  Company Number: NVSC2020CA163684

PATIENT
  Age: 42 Year
  Sex: Female

DRUGS (6)
  1. ENBREL [Concomitant]
     Active Substance: ETANERCEPT
     Indication: PSORIASIS
     Dosage: UNK
     Route: 065
  2. VITAMINE C [Concomitant]
     Active Substance: ASCORBIC ACID
     Indication: PRODUCT USED FOR UNKNOWN INDICATION
     Dosage: UNK
     Route: 065
  3. SIMPONI [Concomitant]
     Active Substance: GOLIMUMAB
     Indication: PSORIASIS
     Dosage: UNK
     Route: 058
  4. COSENTYX [Suspect]
     Active Substance: SECUKINUMAB
     Indication: PSORIASIS
     Dosage: 300 MG, QW
     Route: 058
  5. METHOTREXATE. [Suspect]
     Active Substance: METHOTREXATE
     Indication: PRODUCT USED FOR UNKNOWN INDICATION
     Dosage: UNK
     Route: 065
  6. STELARA [Concomitant]
     Active Substance: USTEKINUMAB
     Indication: PSORIASIS
     Dosage: UNK
     Route: 058

REACTIONS (12)
  - Fungal infection [Unknown]
  - Sinus congestion [Unknown]
  - Sinusitis [Unknown]
  - Eye infection [Unknown]
  - Pneumonia [Unknown]
  - Malaise [Unknown]
  - Oropharyngeal pain [Unknown]
  - Pollakiuria [Unknown]
  - Dysuria [Unknown]
  - Headache [Unknown]
  - Rhinorrhoea [Unknown]
  - Inappropriate schedule of product administration [Unknown]
